FAERS Safety Report 6925287-2 (Version None)
Quarter: 2010Q3

REPORT INFORMATION
  Report Type: 
  Country: None (occurrence: None)
  Receive Date: 20100810
  Receipt Date: 20100720
  Transmission Date: 20110219
  Serious: Yes (Hospitalization, Other)
  Sender: FDA-Public Use
  Company Number: JPI-P-011594

PATIENT
  Age: 56 Year
  Sex: Male
  Weight: 91.173 kg

DRUGS (13)
  1. XYREM [Suspect]
     Indication: NARCOLEPSY
     Dosage: 6 GM (3 GM,2 IN 1D),ORAL, 7 GM (3.5 GM,2 IN 1 D), ORAL
     Route: 048
     Dates: start: 20100305, end: 20100101
  2. XYREM [Suspect]
     Indication: NARCOLEPSY
     Dosage: 6 GM (3 GM,2 IN 1D),ORAL, 7 GM (3.5 GM,2 IN 1 D), ORAL
     Route: 048
     Dates: start: 20100101
  3. THYROID MEDICATION [Concomitant]
  4. LOVASTATIN [Concomitant]
  5. ATORVASTATIN CALCIUM [Concomitant]
  6. ANTIDEPRESSANT [Concomitant]
  7. CETIRIZINE HCL [Concomitant]
  8. FEBUXOSTAT [Concomitant]
  9. ACETYLSALICYLIC ACID [Concomitant]
  10. METFORMIN [Concomitant]
  11. ZAFOXONE [Concomitant]
  12. TRAMADOL [Concomitant]
  13. TOPIRAMATE [Concomitant]

REACTIONS (5)
  - ARRHYTHMIA [None]
  - CONVULSION [None]
  - DYSPNOEA [None]
  - INAPPROPRIATE SCHEDULE OF DRUG ADMINISTRATION [None]
  - SOMNOLENCE [None]
